FAERS Safety Report 19808310 (Version 2)
Quarter: 2021Q3

REPORT INFORMATION
  Report Type: Other
  Country: US (occurrence: US)
  Receive Date: 20210908
  Receipt Date: 20210918
  Transmission Date: 20211014
  Serious: Yes (Other)
  Sender: FDA-Public Use
  Company Number: US-ROCHE-2802950

PATIENT
  Sex: Male

DRUGS (28)
  1. FOSAMAX [Concomitant]
     Active Substance: ALENDRONATE SODIUM
     Indication: PRODUCT USED FOR UNKNOWN INDICATION
     Dosage: 1 TABLET BY MOUTH ONCE WEEK. TAKE IN THE AM ON AN EMPTY STOMACH. DONT LIE DOWN FOR NEXT 3 MIN.
     Route: 048
     Dates: start: 20210120
  2. NOVOLOG [Concomitant]
     Active Substance: INSULIN ASPART
     Indication: PRODUCT USED FOR UNKNOWN INDICATION
     Dosage: SLIDING SCALE WITH EACH MEAL AND AS NEEDED
     Route: 058
     Dates: start: 20200917
  3. INSULIN GLARGINE [Concomitant]
     Active Substance: INSULIN GLARGINE
     Indication: PRODUCT USED FOR UNKNOWN INDICATION
     Dosage: INJECT 55 UNIT INTO SKIN DAILY.
     Route: 058
     Dates: start: 20210202
  4. MICONAZOLE. [Concomitant]
     Active Substance: MICONAZOLE
     Indication: PRODUCT USED FOR UNKNOWN INDICATION
     Dosage: AFTER BRUSHING TEETH IN MORNING, APPLY TABLET BETWEEN UPPER LIP AND GUM (HOLD WITH SLIGHT PRESSURE F
     Route: 048
     Dates: start: 20210317
  5. NEXIUM 24HR [Concomitant]
     Active Substance: ESOMEPRAZOLE MAGNESIUM
     Indication: PRODUCT USED FOR UNKNOWN INDICATION
     Route: 048
     Dates: start: 20201124
  6. ASPIRIN. [Concomitant]
     Active Substance: ASPIRIN
     Indication: PRODUCT USED FOR UNKNOWN INDICATION
     Dosage: 1 TAB BY MOUTH DAILY
     Route: 048
     Dates: start: 20080103
  7. COLLAGENASE SANTYL [Concomitant]
     Active Substance: COLLAGENASE CLOSTRIDIUM HISTOLYTICUM
     Indication: PRODUCT USED FOR UNKNOWN INDICATION
     Dosage: APPLY SMALL AMOUNT TO LEFT FOOT WOUND EVERY 3 DAYS
     Route: 061
     Dates: start: 20210126
  8. DELTASONE [Concomitant]
     Active Substance: PREDNISONE
     Indication: PRODUCT USED FOR UNKNOWN INDICATION
     Dosage: 3 TABLETS BY MOUTH 2 TIMES DAY DO NOT STOP SUDDENLY.
     Route: 048
  9. DELTASONE [Concomitant]
     Active Substance: PREDNISONE
     Dosage: TAKE 4 TABLETS BY MOUTH DAILY
     Route: 048
     Dates: start: 20200917
  10. ACTEMRA [Suspect]
     Active Substance: TOCILIZUMAB
  11. ACTEMRA [Suspect]
     Active Substance: TOCILIZUMAB
     Indication: ARTHROPATHY
     Route: 058
  12. XANAX [Concomitant]
     Active Substance: ALPRAZOLAM
     Indication: PRODUCT USED FOR UNKNOWN INDICATION
     Dosage: 1 TAB BY MOUTH 3 TIMES DAY NEEDED AS MAX DAILY AMOUNT 1.5 MG
     Route: 048
     Dates: start: 20210321
  13. AMPICILLIN [Concomitant]
     Active Substance: AMPICILLIN
     Indication: PRODUCT USED FOR UNKNOWN INDICATION
     Dosage: 8 CAPSULE?TAKE 4 TAB ONE HR BEFORE PROCEDURE
     Route: 048
     Dates: start: 20200917
  14. LIPITOR [Concomitant]
     Active Substance: ATORVASTATIN CALCIUM
     Indication: PRODUCT USED FOR UNKNOWN INDICATION
     Dosage: ONE TABLET BEDTIME
     Route: 048
     Dates: start: 20200917
  15. DIFLUCAN [Concomitant]
     Active Substance: FLUCONAZOLE
     Indication: PRODUCT USED FOR UNKNOWN INDICATION
     Route: 048
     Dates: start: 20210120
  16. VALTREX [Concomitant]
     Active Substance: VALACYCLOVIR HYDROCHLORIDE
     Indication: PRODUCT USED FOR UNKNOWN INDICATION
     Dosage: 1 TABLET BY MOUTH EVERY 8 HRS
     Route: 048
     Dates: start: 20210312
  17. BACTRIM DS [Concomitant]
     Active Substance: SULFAMETHOXAZOLE\TRIMETHOPRIM
     Indication: PRODUCT USED FOR UNKNOWN INDICATION
     Dosage: 80 ?160 MG ORAL TABLET?TAKE 1 TABLET BY MOUTH 3 TIMES PER WEEK
     Route: 048
     Dates: start: 20210120
  18. ALTACE [Concomitant]
     Active Substance: RAMIPRIL
     Indication: PRODUCT USED FOR UNKNOWN INDICATION
     Dosage: 1 CAPSULE BY MOUTH 2 TIMES DAYS
     Route: 048
     Dates: start: 20200917
  19. VERELAN [Concomitant]
     Active Substance: VERAPAMIL HYDROCHLORIDE
     Indication: PRODUCT USED FOR UNKNOWN INDICATION
     Dosage: TAKE 1 CAPSULE BY MOUTH DAILY
     Route: 048
     Dates: start: 20200917
  20. ACTEMRA [Suspect]
     Active Substance: TOCILIZUMAB
  21. LOPRESSOR [Concomitant]
     Active Substance: METOPROLOL TARTRATE
     Indication: PRODUCT USED FOR UNKNOWN INDICATION
     Route: 048
     Dates: start: 20200917
  22. ACTEMRA [Suspect]
     Active Substance: TOCILIZUMAB
  23. ACTEMRA [Suspect]
     Active Substance: TOCILIZUMAB
     Indication: NEOPLASM MALIGNANT
     Route: 058
  24. ACTEMRA [Suspect]
     Active Substance: TOCILIZUMAB
  25. PREDNISONE. [Suspect]
     Active Substance: PREDNISONE
     Indication: PRODUCT USED FOR UNKNOWN INDICATION
     Route: 065
  26. MYCELEX [Concomitant]
     Active Substance: CLOTRIMAZOLE
     Indication: PRODUCT USED FOR UNKNOWN INDICATION
     Dosage: 1 TROCHE BY MOUTH 5 TIMES BY MOUTH DAILY FOR 7 DAYS
     Route: 048
     Dates: start: 20210325
  27. HYDRODIURIL [Concomitant]
     Active Substance: HYDROCHLOROTHIAZIDE
     Indication: PRODUCT USED FOR UNKNOWN INDICATION
     Dosage: 90 TABLET?2 TABLET BY MOUTH DAILY
     Route: 048
     Dates: start: 20201124
  28. LIDOCAIN HCL [Concomitant]
     Indication: PRODUCT USED FOR UNKNOWN INDICATION
     Dosage: APPLY THIS LAYER TO AFFECTED AREA EVERY 6? 8 HR, NOT TO EXCEED 3 APPLICATION IN 24 HR PERIOD
     Route: 061

REACTIONS (7)
  - Blindness [Recovered/Resolved]
  - Headache [Unknown]
  - Vision blurred [Unknown]
  - Diabetes mellitus [Unknown]
  - Off label use [Unknown]
  - Confusional state [Unknown]
  - Memory impairment [Unknown]
